FAERS Safety Report 8805638 (Version 1)
Quarter: 2012Q4

REPORT INFORMATION
  Report Type: 
  Country: US (occurrence: US)
  Receive Date: 20120924
  Receipt Date: 20120924
  Transmission Date: 20130627
  Serious: Yes (Hospitalization)
  Sender: FDA-Public Use
  Company Number: US-ACTELION-A-US2012-64627

PATIENT
  Age: 69 Year
  Sex: Female

DRUGS (3)
  1. VELETRI [Suspect]
     Indication: PULMONARY ARTERIAL HYPERTENSION
     Dosage: 31 ng/kg, per min
     Route: 042
     Dates: start: 20120324
  2. VELETRI [Suspect]
     Dosage: 21 ng/kg, per min
     Route: 042
     Dates: start: 20120302
  3. ADCIRCA [Concomitant]

REACTIONS (3)
  - Renal disorder [Unknown]
  - Abdominal pain [Unknown]
  - Lower gastrointestinal haemorrhage [Recovered/Resolved]
